FAERS Safety Report 9171280 (Version 1)
Quarter: 2013Q1

REPORT INFORMATION
  Report Type: Spontaneous
  Country: JP (occurrence: JP)
  Receive Date: 20130319
  Receipt Date: 20130319
  Transmission Date: 20140127
  Serious: Yes (Hospitalization, Other)
  Sender: FDA-Public Use
  Company Number: JP-PFIZER INC-2013088884

PATIENT
  Age: 76 Year
  Sex: Female

DRUGS (6)
  1. CELECOX [Suspect]
     Dosage: 200 MG, UNK/D
     Route: 048
     Dates: start: 20121030, end: 20121109
  2. GASLON N [Concomitant]
     Dosage: UNK
     Route: 048
  3. DIOVAN [Concomitant]
     Dosage: UNK
  4. SUNRYTHM [Concomitant]
     Dosage: UNK
  5. AMLODIPINE [Concomitant]
     Dosage: UNK
     Route: 048
  6. FEBURIC [Concomitant]
     Dosage: UNK

REACTIONS (1)
  - Oculomucocutaneous syndrome [Recovered/Resolved]
